FAERS Safety Report 6599748-2 (Version None)
Quarter: 2010Q1

REPORT INFORMATION
  Report Type: 
  Country: None (occurrence: None)
  Receive Date: 20100224
  Receipt Date: 20100211
  Transmission Date: 20100710
  Serious: Yes (Hospitalization, Other)
  Sender: FDA-Public Use
  Company Number: PHEH2010US02496

PATIENT
  Sex: Female

DRUGS (1)
  1. GLEEVEC [Suspect]

REACTIONS (6)
  - FLUID RETENTION [None]
  - INTRAPERITONEAL HYPERTHERMIC CHEMOTHERAPY [None]
  - PAIN [None]
  - PULMONARY OEDEMA [None]
  - SPLEEN DISORDER [None]
  - SURGERY [None]
